FAERS Safety Report 23536441 (Version 2)
Quarter: 2024Q3

REPORT INFORMATION
  Report Type: Report from Study
  Country: US (occurrence: US)
  Receive Date: 20240219
  Receipt Date: 20240731
  Transmission Date: 20241016
  Serious: No
  Sender: AURINIA PHARMACEUTICALS
  Company Number: US-AURINIA PHARMACEUTICALS INC.-AUR-005074

PATIENT
  Age: 41 Year
  Sex: Female

DRUGS (3)
  1. LUPKYNIS [Suspect]
     Active Substance: VOCLOSPORIN
     Indication: Lupus nephritis
     Dosage: 23.7 MILLIGRAM, BID
     Route: 048
     Dates: start: 20230619
  2. NIFEDIPINE [Suspect]
     Active Substance: NIFEDIPINE
     Indication: Blood pressure measurement
     Dosage: UNK
  3. AMLODIPINE [Concomitant]
     Active Substance: AMLODIPINE BESYLATE
     Indication: Product used for unknown indication
     Dosage: UNK

REACTIONS (10)
  - Asthenia [Unknown]
  - Lethargy [Unknown]
  - Arthralgia [Unknown]
  - Back pain [Unknown]
  - Allergic sinusitis [Unknown]
  - Adverse drug reaction [Unknown]
  - Dizziness [Unknown]
  - Fatigue [Unknown]
  - Headache [Unknown]
  - Product dose omission issue [Unknown]

NARRATIVE: CASE EVENT DATE: 20240115
